FAERS Safety Report 14314151 (Version 1)
Quarter: 2017Q4

REPORT INFORMATION
  Report Type: Report from Study
  Country: BE (occurrence: BE)
  Receive Date: 20171221
  Receipt Date: 20171221
  Transmission Date: 20180321
  Serious: Yes (Other)
  Sender: FDA-Public Use
  Company Number: BE-MYLANLABS-2017M1077882

PATIENT
  Age: 31 Year
  Sex: Male

DRUGS (8)
  1. METHOTREXATE. [Suspect]
     Active Substance: METHOTREXATE
     Indication: OCULAR LYMPHOMA
     Route: 037
  2. DOXORUBICIN [Concomitant]
     Active Substance: DOXORUBICIN
     Indication: OCULAR LYMPHOMA
     Dosage: AS A PART OF CHOP REGIMEN
     Route: 042
  3. VINCRISTINE [Concomitant]
     Active Substance: VINCRISTINE
     Indication: OCULAR LYMPHOMA
     Dosage: AS A PART OF CHOP REGIMEN
     Route: 042
  4. FOLINIC ACID [Concomitant]
     Active Substance: LEUCOVORIN
     Indication: OCULAR LYMPHOMA
     Route: 042
  5. METHOTREXATE. [Suspect]
     Active Substance: METHOTREXATE
     Route: 042
  6. METHOTREXATE. [Concomitant]
     Active Substance: METHOTREXATE
     Indication: OCULAR LYMPHOMA
     Dosage: 400 UG, TWICE WEEKLY, 7 TIMES
     Route: 050
  7. CYCLOPHOSPHAMIDE. [Concomitant]
     Active Substance: CYCLOPHOSPHAMIDE
     Indication: OCULAR LYMPHOMA
     Dosage: AS A PART OF CHOP REGIMEN
     Route: 042
  8. PREDNISONE. [Concomitant]
     Active Substance: PREDNISONE
     Indication: OCULAR LYMPHOMA
     Dosage: AS A PART OF CHOP REGIMEN
     Route: 042

REACTIONS (1)
  - Keratitis [Unknown]
